FAERS Safety Report 20591569 (Version 3)
Quarter: 2022Q4

REPORT INFORMATION
  Report Type: Report from Study
  Country: ES (occurrence: ES)
  Receive Date: 20220314
  Receipt Date: 20221021
  Transmission Date: 20230113
  Serious: Yes (Hospitalization)
  Sender: FDA-Public Use
  Company Number: ES-JNJFOC-20220313994

PATIENT
  Age: 70 Year
  Sex: Male
  Weight: 73.1 kg

DRUGS (9)
  1. ERDAFITINIB [Suspect]
     Active Substance: ERDAFITINIB
     Indication: Transitional cell carcinoma
     Route: 048
     Dates: start: 20211228
  2. OMEPRAZOLE [Concomitant]
     Active Substance: OMEPRAZOLE
     Indication: Prophylaxis
  3. MOVICOLON [Concomitant]
     Active Substance: POLYETHYLENE GLYCOL 3350\POTASSIUM CHLORIDE\SODIUM BICARBONATE\SODIUM CHLORIDE
     Indication: Constipation prophylaxis
  4. CRISTALMINA [Concomitant]
     Indication: Skin disorder prophylaxis
  5. LACTITOL [Concomitant]
     Active Substance: LACTITOL
     Indication: Constipation prophylaxis
  6. EBASTINE [Concomitant]
     Active Substance: EBASTINE
  7. ACETAMINOPHEN [Concomitant]
     Active Substance: ACETAMINOPHEN
     Indication: Prophylaxis
  8. IRON [Concomitant]
     Active Substance: IRON
     Indication: Haematoma
     Dates: start: 20220221, end: 20220221
  9. TRANEXAMIC ACID [Concomitant]
     Active Substance: TRANEXAMIC ACID
     Indication: Haematoma
     Dates: start: 20220224

REACTIONS (1)
  - Bone contusion [Recovered/Resolved with Sequelae]

NARRATIVE: CASE EVENT DATE: 20220228
